FAERS Safety Report 15619845 (Version 1)
Quarter: 2018Q4

REPORT INFORMATION
  Report Type: Spontaneous
  Country: FR (occurrence: FR)
  Receive Date: 20181115
  Receipt Date: 20181115
  Transmission Date: 20190205
  Serious: Yes (Hospitalization, Other)
  Sender: FDA-Public Use
  Company Number: FR-TEVA-2018-FR-974942

PATIENT
  Sex: Female

DRUGS (1)
  1. PIROXICAM TEVA 20 MG/1 ML [Suspect]
     Active Substance: PIROXICAM
     Dates: start: 201810

REACTIONS (18)
  - Swelling face [Unknown]
  - Abdominal distension [Unknown]
  - Erythema [Not Recovered/Not Resolved]
  - Asthenia [Not Recovered/Not Resolved]
  - Somnolence [Unknown]
  - Mouth swelling [Unknown]
  - Pruritus generalised [Recovering/Resolving]
  - Headache [Unknown]
  - Urine abnormality [Unknown]
  - Malaise [Unknown]
  - Generalised erythema [Recovering/Resolving]
  - Blister [Recovering/Resolving]
  - Skin burning sensation [Recovering/Resolving]
  - Stevens-Johnson syndrome [Recovering/Resolving]
  - Eye swelling [Unknown]
  - Dysuria [Unknown]
  - Swelling [Unknown]
  - Bronchitis [Not Recovered/Not Resolved]
